FAERS Safety Report 9228550 (Version 2)
Quarter: 2013Q2

REPORT INFORMATION
  Report Type: Spontaneous
  Country: US (occurrence: US)
  Receive Date: 20130412
  Receipt Date: 20130531
  Transmission Date: 20140414
  Serious: Yes (Hospitalization, Other)
  Sender: FDA-Public Use
  Company Number: US-CELGENEUS-163-20785-13020721

PATIENT
  Age: 69 Year
  Sex: Male

DRUGS (2)
  1. THALOMID [Suspect]
     Indication: PLASMA CELL MYELOMA
     Dosage: 50 MILLIGRAM
     Route: 048
     Dates: start: 20121204, end: 20130214
  2. ZOMETA [Concomitant]
     Indication: PLASMA CELL MYELOMA
     Dates: start: 201103, end: 201111

REACTIONS (2)
  - Melanoma recurrent [Recovering/Resolving]
  - Plasma cell myeloma [Unknown]
